FAERS Safety Report 6862440-0 (Version None)
Quarter: 2010Q3

REPORT INFORMATION
  Report Type: 
  Country: None (occurrence: None)
  Receive Date: 20100716
  Receipt Date: 20100703
  Transmission Date: 20110219
  Serious: Yes (Hospitalization, Other)
  Sender: FDA-Public Use
  Company Number: 2010AP001383

PATIENT
  Age: 83 Year
  Sex: Female

DRUGS (4)
  1. CITALOPRAM HYDROBROMIDE [Suspect]
     Indication: DEPRESSION
     Dosage: 10 MG, QD; 20 MG; QD
  2. CARBASALATE CALCIUM [Concomitant]
  3. CARBAMAZEPINE [Concomitant]
  4. LEVETIRACETAM [Concomitant]

REACTIONS (6)
  - FACTOR V DEFICIENCY [None]
  - FALL [None]
  - HAEMANGIOMA [None]
  - HEPATIC ENZYME INCREASED [None]
  - HEPATOTOXICITY [None]
  - LOSS OF CONSCIOUSNESS [None]
